FAERS Safety Report 7775303-3 (Version None)
Quarter: 2011Q3

REPORT INFORMATION
  Report Type: 
  Country: None (occurrence: None)
  Receive Date: 20110923
  Receipt Date: 20110920
  Transmission Date: 20111222
  Serious: Yes (Other)
  Sender: FDA-Public Use
  Company Number: PT-PFIZER INC-2011224230

PATIENT
  Age: 19 Year
  Sex: Female

DRUGS (2)
  1. METHYLPREDNISOLONE [Suspect]
  2. PREDNISOLONE [Suspect]

REACTIONS (1)
  - SYSTEMIC LUPUS ERYTHEMATOSUS [None]
